FAERS Safety Report 15423817 (Version 1)
Quarter: 2018Q3

REPORT INFORMATION
  Report Type: Spontaneous
  Country: US (occurrence: US)
  Receive Date: 20180920
  Receipt Date: 20180920
  Transmission Date: 20181010
  Serious: Yes (Hospitalization)
  Sender: FDA-Public Use
  Company Number: None

PATIENT
  Sex: Female

DRUGS (12)
  1. EZETIMBE [Concomitant]
     Active Substance: EZETIMIBE
  2. METOPROLOL. [Concomitant]
     Active Substance: METOPROLOL
  3. PREDNISONE. [Concomitant]
     Active Substance: PREDNISONE
  4. CALCITROL [Concomitant]
     Active Substance: CALCITRIOL
  5. SODIUM BICARB [Concomitant]
     Active Substance: SODIUM BICARBONATE
  6. TACROLIMUS. [Suspect]
     Active Substance: TACROLIMUS
     Indication: RENAL TRANSPLANT
     Route: 048
     Dates: start: 20180817
  7. FAMOTIDINE. [Concomitant]
     Active Substance: FAMOTIDINE
  8. ROSUVASTATIN. [Concomitant]
     Active Substance: ROSUVASTATIN
  9. ZETIA [Concomitant]
     Active Substance: EZETIMIBE
  10. FUROSEMIDE. [Concomitant]
     Active Substance: FUROSEMIDE
  11. ASPIRIN. [Concomitant]
     Active Substance: ASPIRIN
  12. CELLCEPT [Suspect]
     Active Substance: MYCOPHENOLATE MOFETIL\MYCOPHENOLATE MOFETIL HYDROCHLORIDE
     Indication: RENAL TRANSPLANT
     Route: 048
     Dates: start: 20170706

REACTIONS (2)
  - Renal transplant [None]
  - Surgical procedure repeated [None]
